FAERS Safety Report 5273503-8 (Version None)
Quarter: 2007Q1

REPORT INFORMATION
  Report Type: 
  Country: None (occurrence: None)
  Receive Date: 20070321
  Receipt Date: 20070321
  Transmission Date: 20070707
  Serious: No
  Sender: FDA-Public Use
  Company Number: None

PATIENT
  Sex: Female
  Weight: 81.6475 kg

DRUGS (1)
  1. ESTRADIOL [Suspect]
     Indication: HORMONE REPLACEMENT THERAPY
     Dosage: 1 DAILY  (STARTED ABOUT 2/23 AND EXPERIENCED SE ABOUT 10-14 DAYS LATER

REACTIONS (4)
  - DRUG INEFFECTIVE [None]
  - INCORRECT DOSE ADMINISTERED [None]
  - NIGHT SWEATS [None]
  - PHARMACEUTICAL PRODUCT COMPLAINT [None]
